FAERS Safety Report 9721550 (Version 2)
Quarter: 2013Q4

REPORT INFORMATION
  Report Type: Spontaneous
  Country: JP (occurrence: JP)
  Receive Date: 20131130
  Receipt Date: 20131224
  Transmission Date: 20140711
  Serious: Yes (Hospitalization, Other)
  Sender: FDA-Public Use
  Company Number: PHHY2013JP137415

PATIENT
  Age: 63 Year
  Sex: Female

DRUGS (2)
  1. FEMARA [Suspect]
     Indication: BREAST CANCER
     Dosage: 2.5 MG, DAILY
     Route: 048
     Dates: start: 20110520, end: 20110720
  2. ZOMETA [Suspect]
     Indication: METASTASES TO BONE
     Dosage: 4 MG, UNK
     Dates: start: 20110720

REACTIONS (5)
  - Disseminated intravascular coagulation [Recovering/Resolving]
  - Platelet count decreased [Recovering/Resolving]
  - Fibrin D dimer increased [Unknown]
  - Metastases to bone [Unknown]
  - Malignant neoplasm progression [Unknown]
